FAERS Safety Report 10005220 (Version 2)
Quarter: 2014Q1

REPORT INFORMATION
  Report Type: Spontaneous
  Country: JP (occurrence: JP)
  Receive Date: 20140312
  Receipt Date: 20140312
  Transmission Date: 20141002
  Serious: Yes (Other)
  Sender: FDA-Public Use
  Company Number: PHHY2013JP086894

PATIENT
  Sex: Female
  Weight: 43 kg

DRUGS (6)
  1. DIOVAN [Suspect]
     Indication: HYPERTENSION
     Dosage: 80 MG, DAILY
     Route: 048
     Dates: start: 20070205, end: 20101003
  2. CO-DIOVAN [Suspect]
     Indication: HYPERTENSION
     Dosage: 1 DF, DAILY
     Route: 048
     Dates: start: 20101004, end: 20130808
  3. AMLODIN [Concomitant]
     Dosage: 5 MG, UNK
     Route: 048
     Dates: start: 20130809
  4. SELBEX [Concomitant]
     Dosage: 3 DF, DAILY
     Route: 048
     Dates: start: 20070921
  5. MIYARISAN BM [Concomitant]
     Dosage: 3 G, UNK
     Route: 048
     Dates: start: 20070921
  6. GASPORT [Concomitant]
     Dosage: 40 MG, UNK
     Route: 048
     Dates: start: 20130712

REACTIONS (6)
  - Cataract [Recovering/Resolving]
  - Skin exfoliation [Recovering/Resolving]
  - Dermatitis [Recovering/Resolving]
  - Erythema [Unknown]
  - Eczema [Unknown]
  - Pruritus [Recovering/Resolving]
